FAERS Safety Report 7901245-6 (Version None)
Quarter: 2011Q4

REPORT INFORMATION
  Report Type: 
  Country: None (occurrence: None)
  Receive Date: 20111108
  Receipt Date: 20111028
  Transmission Date: 20120403
  Serious: Yes (Death)
  Sender: FDA-Public Use
  Company Number: PHHY2011AU96756

PATIENT

DRUGS (1)
  1. CLOZAPINE [Suspect]

REACTIONS (2)
  - ORTHOSTATIC HYPOTENSION [None]
  - CEREBROVASCULAR ACCIDENT [None]
